FAERS Safety Report 8955899 (Version 1)
Quarter: 2012Q4

REPORT INFORMATION
  Report Type: 
  Country: US (occurrence: US)
  Receive Date: 20121210
  Receipt Date: 20121210
  Transmission Date: 20130627
  Serious: Yes (Other)
  Sender: FDA-Public Use
  Company Number: US-PFIZER INC-2012305273

PATIENT
  Age: 22 Year
  Sex: Male
  Weight: 79.37 kg

DRUGS (2)
  1. VIAGRA [Suspect]
     Indication: ERECTILE DYSFUNCTION
     Dosage: UNK, as needed
     Route: 048
     Dates: start: 20110816
  2. VIAGRA [Suspect]
     Dosage: 200 mg, as needed
     Route: 048

REACTIONS (2)
  - Incorrect dose administered [Unknown]
  - Erection increased [Not Recovered/Not Resolved]
